FAERS Safety Report 21801630 (Version 1)
Quarter: 2022Q4

REPORT INFORMATION
  Report Type: Spontaneous
  Country: CH (occurrence: CH)
  Receive Date: 20221230
  Receipt Date: 20221230
  Transmission Date: 20230113
  Serious: Yes (Life-Threatening, Hospitalization, Other)
  Sender: FDA-Public Use
  Company Number: CH-SM-2022-22248

PATIENT
  Age: 48 Year
  Sex: Male
  Weight: 88 kg

DRUGS (7)
  1. SULFAMETHOXAZOLE\TRIMETHOPRIM [Suspect]
     Active Substance: SULFAMETHOXAZOLE\TRIMETHOPRIM
     Indication: Product used for unknown indication
     Dates: start: 201912
  2. MABTHERA [Suspect]
     Active Substance: RITUXIMAB
     Indication: Product used for unknown indication
     Dosage: RITUXIMAB (MABTHERA) 1400 MG S.C. SINCE 07/2020 EVERY 2 MONTHS, LAST DOSE ON 03/21/2022, TOTAL 12...
     Route: 058
     Dates: start: 202007, end: 20220321
  3. MABTHERA [Suspect]
     Active Substance: RITUXIMAB
     Dosage: MANTLE CELL LYMPHOMA - TREATMENT AS PART OF THE TRIANGLE STUDY, RANDOMIZATION IN ARM A (STANDARD T..
     Dates: start: 20191217, end: 20200405
  4. CRESTOR [Suspect]
     Active Substance: ROSUVASTATIN CALCIUM
     Indication: Product used for unknown indication
     Dosage: 10 MILLIGRAM DAILY; ROSUVASTATIN (CRESTOR) 10 MG 1-0-0-0, PAUSED IN 2020, PREVIOUSLY ATORVASTATIN (S
     Dates: start: 2021
  5. ASPIRIN [Concomitant]
     Active Substance: ASPIRIN
     Indication: Product used for unknown indication
     Dates: start: 2016
  6. AIREXAR SPIROMAX [Concomitant]
     Indication: Product used for unknown indication
     Dosage: CORRECT WOULD BE SEFFALAIR  SPIROMAX , MULTI-DOSE POWDER INHALER, FROM TEVA. WAS NOT DISPLAYED
  7. PREDNISONE [Concomitant]
     Active Substance: PREDNISONE
     Indication: Product used for unknown indication
     Dosage: PREDNISONE SINCE 09/2022, INITIALLY 80 MG/THE CURRENTLY 10 MG/THE
     Route: 048
     Dates: start: 202209

REACTIONS (2)
  - Interstitial lung disease [Not Recovered/Not Resolved]
  - COVID-19 pneumonia [Not Recovered/Not Resolved]

NARRATIVE: CASE EVENT DATE: 20221121
